FAERS Safety Report 4704288-9 (Version None)
Quarter: 2005Q2

REPORT INFORMATION
  Report Type: 
  Country: None (occurrence: None)
  Receive Date: 20050629
  Receipt Date: 20050627
  Transmission Date: 20051028
  Serious: Yes (Death, Other)
  Sender: FDA-Public Use
  Company Number: OXYA20050001

PATIENT
  Age: 35 Year
  Sex: Male

DRUGS (11)
  1. OXYCODONE 5/APAP 500 [Suspect]
     Indication: DRUG WITHDRAWAL SYNDROME
     Dosage: 1 TAB Q6H PO
     Route: 048
  2. METHADONE [Suspect]
     Indication: DETOXIFICATION
     Dosage: 35 MG BID PO
     Route: 048
  3. OXYCODONE CR 20 MG [Suspect]
     Indication: DRUG WITHDRAWAL SYNDROME
     Dosage: 20 MG TID PO
     Route: 048
  4. COCAINE [Suspect]
     Dates: end: 20030101
  5. CLONIDINE [Suspect]
     Indication: DETOXIFICATION
     Dosage: 0.1 MG BID PO
     Route: 048
  6. ZOLPIDEM [Suspect]
     Dosage: 10 MG ONCE PO
     Route: 048
     Dates: start: 20030101, end: 20030101
  7. ALPRAZOLAM [Suspect]
     Indication: DRUG WITHDRAWAL SYNDROME
     Dosage: 2 MG TID PO
     Route: 048
     Dates: start: 20030101, end: 20030101
  8. OXYCODONE HCL [Suspect]
     Indication: BACK PAIN
     Dosage: 800 MG DAILY
     Dates: end: 20030101
  9. OXYCODONE 5/APAP 500 [Suspect]
     Indication: BACK PAIN
     Dosage: 70 TABS DAILY PO
     Route: 048
     Dates: end: 20030101
  10. HYDROCODONE/ APAP 7.5MG/325MG UNKNOWN [Suspect]
     Indication: BACK PAIN
     Dosage: 70 TABS DAILY PO
     Route: 048
     Dates: end: 20030101
  11. ALPRAZOLAM [Suspect]
     Dosage: 12 TABS DAILY PO
     Route: 048
     Dates: end: 20030101

REACTIONS (8)
  - ASPHYXIA [None]
  - ASPIRATION [None]
  - DRUG DEPENDENCE [None]
  - DRUG LEVEL ABOVE THERAPEUTIC [None]
  - DRUG TOXICITY [None]
  - DRUG WITHDRAWAL SYNDROME [None]
  - RESPIRATORY DEPRESSION [None]
  - VOMITING [None]
